FAERS Safety Report 10047431 (Version 1)
Quarter: 2014Q1

REPORT INFORMATION
  Report Type: Spontaneous
  Country: GB (occurrence: None)
  Receive Date: 20140327
  Receipt Date: 20140327
  Transmission Date: 20141002
  Serious: Yes (Hospitalization, Disabling)
  Sender: FDA-Public Use
  Company Number: AUR-APL-2014-03627

PATIENT
  Sex: Female

DRUGS (10)
  1. QUETIAPINE [Suspect]
     Indication: PRODUCT USED FOR UNKNOWN INDICATION
     Dosage: 1 IN 1 D
     Route: 048
  2. AMOXICILLIN (AMOXICILLIN) [Concomitant]
  3. ATENOLOL (ATENOLOL) [Concomitant]
  4. CODEINE (CODEINE) [Concomitant]
  5. DIAZEPAM [Concomitant]
  6. DIFFLAM (BENZYDAMINE HYDROCHLORIDE) [Concomitant]
  7. LORAZEPAM [Concomitant]
  8. MIRTAZAPINE [Concomitant]
  9. MOVICOL (POLYETHYL. GLYC. W/POTAS. CHLOR. /SOD. BICARB.) [Concomitant]
  10. PARACETAMOL [Concomitant]

REACTIONS (6)
  - Gait disturbance [None]
  - Dyskinesia [None]
  - Blepharospasm [None]
  - Tardive dyskinesia [None]
  - Tongue movement disturbance [None]
  - Choreoathetosis [None]
